FAERS Safety Report 4838123-5 (Version None)
Quarter: 2005Q4

REPORT INFORMATION
  Report Type: 
  Country: None (occurrence: None)
  Receive Date: 20051128
  Receipt Date: 20051121
  Transmission Date: 20060501
  Serious: Yes (Death)
  Sender: FDA-Public Use
  Company Number: 2005AC01856

PATIENT
  Age: 44 Year
  Sex: Male

DRUGS (4)
  1. PROPOFOL [Suspect]
     Indication: GENERAL ANAESTHESIA
  2. SUCCINYLCHOLINE CHLORIDE [Concomitant]
     Indication: GENERAL ANAESTHESIA
  3. ESMERON [Concomitant]
     Indication: GENERAL ANAESTHESIA
  4. FENTANYL [Concomitant]
     Indication: GENERAL ANAESTHESIA

REACTIONS (7)
  - ARRHYTHMIA [None]
  - ARTHRALGIA [None]
  - CARDIAC ARREST [None]
  - HAEMODIALYSIS [None]
  - OLIGURIA [None]
  - RENAL FAILURE [None]
  - RHABDOMYOLYSIS [None]
